FAERS Safety Report 9364116 (Version 1)
Quarter: 2013Q2

REPORT INFORMATION
  Report Type: Spontaneous
  Country: IT (occurrence: None)
  Receive Date: 20130618
  Receipt Date: 20130618
  Transmission Date: 20140414
  Serious: Yes (Other)
  Sender: FDA-Public Use
  Company Number: 1747169

PATIENT
  Age: 35 Year
  Sex: Female

DRUGS (6)
  1. DOCETAXEL [Suspect]
     Indication: BREAST CANCER
     Dosage: CYCLICAL
     Route: 042
     Dates: start: 20130320, end: 20130531
  2. HERCEPTIN [Concomitant]
  3. TRIMETON [Suspect]
  4. RANIDIL [Suspect]
  5. ALOXI [Suspect]
  6. SOLDESAM [Suspect]

REACTIONS (6)
  - Headache [None]
  - Hypotension [None]
  - Chest discomfort [None]
  - Dizziness [None]
  - Dyspnoea [None]
  - Chest discomfort [None]
